FAERS Safety Report 6338879-9 (Version None)
Quarter: 2009Q3

REPORT INFORMATION
  Report Type: 
  Country: None (occurrence: None)
  Receive Date: 20090903
  Receipt Date: 20090825
  Transmission Date: 20100115
  Serious: Yes (Hospitalization)
  Sender: FDA-Public Use
  Company Number: PHHY2009GB36116

PATIENT
  Age: 25 Year
  Sex: Male
  Weight: 80 kg

DRUGS (3)
  1. CLOZAPINE [Suspect]
     Indication: DELUSIONAL DISORDER, PERSECUTORY TYPE
     Dosage: 450 MG, UNK
     Route: 048
     Dates: start: 20080701, end: 20090731
  2. CLOZAPINE [Suspect]
     Dosage: UNK
     Dates: end: 20090803
  3. LANSOPRAZOLE [Concomitant]

REACTIONS (1)
  - BLOOD CREATININE INCREASED [None]
